FAERS Safety Report 13095601 (Version 4)
Quarter: 2022Q3

REPORT INFORMATION
  Report Type: Other
  Country: CA (occurrence: None)
  Receive Date: 20170108
  Receipt Date: 20220920
  Transmission Date: 20221027
  Serious: Yes (Other)
  Sender: FDA-Public Use
  Company Number: CA-ROCHE-1190978

PATIENT
  Age: 51 Year
  Sex: Female
  Weight: 61.2 kg

DRUGS (11)
  1. RITUXAN [Suspect]
     Active Substance: RITUXIMAB
     Indication: Rheumatoid arthritis
     Route: 042
     Dates: start: 20091102, end: 20150213
  2. RITUXAN [Suspect]
     Active Substance: RITUXIMAB
     Dosage: SINGLE INFUSIONS
     Route: 042
     Dates: start: 20151216, end: 20211217
  3. CELEBREX [Concomitant]
     Active Substance: CELECOXIB
  4. NASONEX [Concomitant]
     Active Substance: MOMETASONE FUROATE
  5. TYLENOL [Concomitant]
     Active Substance: ACETAMINOPHEN
  6. OMEGA-3 ACIDS [Concomitant]
     Active Substance: OMEGA-3 FATTY ACIDS
  7. DIPHENHYDRAMINE HYDROCHLORIDE [Concomitant]
     Active Substance: DIPHENHYDRAMINE HYDROCHLORIDE
     Indication: Premedication
     Route: 048
     Dates: start: 20091202
  8. ACETAMINOPHEN [Concomitant]
     Active Substance: ACETAMINOPHEN
     Indication: Premedication
     Route: 048
     Dates: start: 20091202
  9. REMICADE [Concomitant]
     Active Substance: INFLIXIMAB
  10. BENADRYL [Concomitant]
     Active Substance: DIPHENHYDRAMINE HYDROCHLORIDE
     Indication: Premedication
  11. SOLU-MEDROL [Concomitant]
     Active Substance: METHYLPREDNISOLONE SODIUM SUCCINATE
     Indication: Premedication
     Route: 042

REACTIONS (4)
  - Infusion related reaction [Recovered/Resolved]
  - Psoriasis [Recovering/Resolving]
  - Skin plaque [Unknown]
  - Off label use [Unknown]

NARRATIVE: CASE EVENT DATE: 20130211
